FAERS Safety Report 7343791-2 (Version None)
Quarter: 2011Q1

REPORT INFORMATION
  Report Type: 
  Country: None (occurrence: None)
  Receive Date: 20110310
  Receipt Date: 20110304
  Transmission Date: 20110831
  Serious: Yes (Death, Other)
  Sender: FDA-Public Use
  Company Number: JP-ROCHE-673737

PATIENT
  Sex: Female
  Weight: 73 kg

DRUGS (11)
  1. NIVADIL [Concomitant]
     Route: 048
  2. BLOPRESS [Concomitant]
     Dosage: DRUG NAME: BLOPRESS(CANDESARTAN CILEXETIL)
     Route: 048
  3. BENZALIN [Concomitant]
     Dosage: DOSE FORM: PERORAL AGENT
     Route: 048
  4. LANDSEN [Concomitant]
     Dosage: DOSE FORM: PERORAL AGENT
     Route: 048
  5. XELODA [Suspect]
     Indication: BREAST CANCER METASTATIC
     Dosage: DRUG NAME: XELODA 300
     Route: 048
     Dates: start: 20091019, end: 20091109
  6. AKINETON [Concomitant]
     Dosage: DOSE FORM: PERORAL AGENT
     Route: 048
  7. HIRNAMIN [Concomitant]
     Dosage: DRUG NAME: HIRNAMIN(LEVOMEPROMAZINE MALEATE), DOSE FORM: PERORAL AGENT
     Route: 048
  8. RISPERDAL [Concomitant]
     Dosage: DOSE FORM: PERORAL AGENT
     Route: 048
  9. GASTER D [Concomitant]
     Route: 048
     Dates: start: 20090925
  10. BETAMETHASONE [Concomitant]
     Dosage: DRUG NAME: RINDERON(BETAMETHASONE), DOSE FORM: PERORAL AGENT
     Route: 048
     Dates: start: 20091009
  11. SOLANAX [Concomitant]
     Route: 048

REACTIONS (5)
  - FREQUENT BOWEL MOVEMENTS [None]
  - METASTASES TO MENINGES [None]
  - POLLAKIURIA [None]
  - TOXIC ENCEPHALOPATHY [None]
  - HYPOAESTHESIA [None]
